FAERS Safety Report 4688685-6 (Version None)
Quarter: 2005Q2

REPORT INFORMATION
  Report Type: 
  Country: None (occurrence: None)
  Receive Date: 20050608
  Receipt Date: 20050608
  Transmission Date: 20051028
  Serious: Yes (Other)
  Sender: FDA-Public Use
  Company Number: None

PATIENT
  Age: 31 Year
  Sex: Male
  Weight: 92.5338 kg

DRUGS (2)
  1. ASA 325MG + BUTALBITAL 50MG + CAFFEINE 40MG [Suspect]
     Indication: TENSION HEADACHE
     Dosage: 1 TABLET EVERY 4 HR - AS NEEDED
     Dates: start: 20050602, end: 20050603
  2. ATENTOL [Concomitant]

REACTIONS (6)
  - CONDITION AGGRAVATED [None]
  - DIZZINESS [None]
  - DRUG INEFFECTIVE [None]
  - NAUSEA [None]
  - PHARMACEUTICAL PRODUCT COMPLAINT [None]
  - PRURITUS [None]
